FAERS Safety Report 10207104 (Version 1)
Quarter: 2014Q2

REPORT INFORMATION
  Report Type: Spontaneous
  Country: US (occurrence: None)
  Receive Date: 20140529
  Receipt Date: 20140529
  Transmission Date: 20141212
  Serious: No
  Sender: FDA-Public Use
  Company Number: None

PATIENT
  Age: 79 Year
  Sex: 0

DRUGS (1)
  1. AMLODIPINE BESYLATE/ BENAZAPRIL HYDROCHLORIDE [Suspect]

REACTIONS (1)
  - Myalgia [None]
